FAERS Safety Report 7094526-2 (Version None)
Quarter: 2010Q4

REPORT INFORMATION
  Report Type: 
  Country: None (occurrence: None)
  Receive Date: 20101110
  Receipt Date: 20101102
  Transmission Date: 20110411
  Serious: Yes (Other)
  Sender: FDA-Public Use
  Company Number: US-SANOFI-AVENTIS-2010SA067061

PATIENT
  Sex: Female

DRUGS (5)
  1. LANTUS [Suspect]
     Indication: TYPE 2 DIABETES MELLITUS
     Dosage: DOSE:10 UNIT(S)
     Route: 058
  2. LANTUS [Suspect]
     Dosage: DOSE:35 UNIT(S)
     Route: 058
  3. OPTICLICK [Suspect]
     Indication: TYPE 2 DIABETES MELLITUS
  4. METFORMIN HCL [Suspect]
     Indication: TYPE 2 DIABETES MELLITUS
     Route: 065
     Dates: end: 20090401
  5. GLYBURIDE [Concomitant]
     Indication: TYPE 2 DIABETES MELLITUS

REACTIONS (6)
  - CATARACT [None]
  - DIARRHOEA [None]
  - EYE INFECTION [None]
  - PROCEDURAL COMPLICATION [None]
  - SPINAL FRACTURE [None]
  - VITREOUS FLOATERS [None]
